FAERS Safety Report 7374883-X (Version None)
Quarter: 2011Q1

REPORT INFORMATION
  Report Type: 
  Country: None (occurrence: None)
  Receive Date: 20110325
  Receipt Date: 20110228
  Transmission Date: 20110831
  Serious: No
  Sender: FDA-Public Use
  Company Number: US-B.I. PHARMACEUTICALS,INC./RIDGEFIELD-2011-BP-05679BP

PATIENT
  Sex: Female

DRUGS (3)
  1. PRADAXA [Suspect]
     Indication: ATRIAL FIBRILLATION
     Dosage: 300 MG
     Route: 048
     Dates: start: 20110201
  2. DIGOXIN [Concomitant]
     Indication: ARRHYTHMIA
     Dosage: 250 MG
     Route: 048
  3. METOPROLOL [Concomitant]
     Indication: ARRHYTHMIA
     Dosage: 100 MG
     Route: 048

REACTIONS (1)
  - PRODUCTIVE COUGH [None]
